FAERS Safety Report 4380879-2 (Version None)
Quarter: 2004Q2

REPORT INFORMATION
  Report Type: 
  Country: None (occurrence: None)
  Receive Date: 20040616
  Receipt Date: 20040604
  Transmission Date: 20050107
  Serious: Yes (Hospitalization)
  Sender: FDA-Public Use
  Company Number: 03P-167-0241927-00

PATIENT
  Age: 55 Year
  Sex: Female
  Weight: 106 kg

DRUGS (7)
  1. HUMIRA [Suspect]
     Indication: RHEUMATOID ARTHRITIS
     Dosage: 40 MG, 1 IN 2 WK, SUBCUTANEOUS
     Route: 058
     Dates: start: 20030515, end: 20030701
  2. HUMIRA [Suspect]
     Indication: RHEUMATOID ARTHRITIS
     Dosage: 40 MG, 1 IN 2 WK, SUBCUTANEOUS
     Route: 058
     Dates: start: 20040201
  3. FUROSEMIDE [Concomitant]
  4. TRAMADOL [Concomitant]
  5. DOMPERIDONE [Concomitant]
  6. FOLIC ACID [Concomitant]
  7. PREDNISOLONE [Concomitant]

REACTIONS (2)
  - ACUTE MYOCARDIAL INFARCTION [None]
  - MUSCULOSKELETAL PAIN [None]
